FAERS Safety Report 8591934-5 (Version None)
Quarter: 2012Q3

REPORT INFORMATION
  Report Type: 
  Country: None (occurrence: None)
  Receive Date: 20120814
  Receipt Date: 20120731
  Transmission Date: 20120928
  Serious: Yes (Hospitalization)
  Sender: FDA-Public Use
  Company Number: FR-PFIZER INC-2012194316

PATIENT
  Age: 65 Year
  Sex: Male
  Weight: 66 kg

DRUGS (12)
  1. PREDNISONE TAB [Suspect]
     Indication: JUVENILE ARTHRITIS
     Dosage: 3 MG, DAILY
     Route: 048
  2. SERTRALINE [Concomitant]
     Dosage: 100 MG, DAILY
     Route: 065
  3. BISOPROLOL [Concomitant]
     Route: 065
  4. ZYVOX [Suspect]
     Dosage: 7.8 MG/L, UNKNOWN
     Dates: start: 20120628
  5. METHOTREXATE [Suspect]
     Indication: JUVENILE ARTHRITIS
     Dosage: 20 MG, WEEKLY
     Route: 048
  6. ZYVOX [Suspect]
     Dosage: 600 MG, 2X/DAY
     Route: 065
     Dates: start: 20120531, end: 20120626
  7. METFORMIN [Concomitant]
     Indication: TYPE 2 DIABETES MELLITUS
     Dosage: 850 MG, 3X/DAY
     Route: 065
  8. KETOPROFEN [Suspect]
     Indication: JUVENILE ARTHRITIS
     Dosage: 100-300 MG, DAILY
     Route: 048
  9. TETRAZEPAM [Concomitant]
     Route: 065
  10. PANTOPRAZOLE [Concomitant]
  11. CLARITHROMYCIN [Suspect]
     Dosage: 500 MG, 2X/DAY
     Route: 065
     Dates: start: 20120531, end: 20120626
  12. ASPEGIC 1000 [Concomitant]
     Dosage: 100 MG, DAILY
     Route: 065

REACTIONS (12)
  - MYCOBACTERIUM CHELONAE INFECTION [None]
  - VOMITING [None]
  - WEIGHT DECREASED [None]
  - HYPERCREATININAEMIA [None]
  - MEGAKARYOCYTES ABNORMAL [None]
  - DIARRHOEA [None]
  - NEUTROPENIA [None]
  - RED BLOOD CELL COUNT DECREASED [None]
  - RECTAL HAEMORRHAGE [None]
  - THROMBOCYTOPENIA [None]
  - RETICULOCYTE COUNT DECREASED [None]
  - HYPERKALAEMIA [None]
